FAERS Safety Report 11702075 (Version 1)
Quarter: 2015Q4

REPORT INFORMATION
  Report Type: Spontaneous
  Country: US (occurrence: US)
  Receive Date: 20151105
  Receipt Date: 20151105
  Transmission Date: 20160304
  Serious: No
  Sender: FDA-Public Use
  Company Number: US-BAXALTA-2015BLT002581

PATIENT
  Sex: Female

DRUGS (1)
  1. GAMMAGARD LIQUID [Suspect]
     Active Substance: HUMAN IMMUNOGLOBULIN G
     Indication: SELECTIVE IGG SUBCLASS DEFICIENCY
     Dosage: 30 G, UNK
     Route: 042
     Dates: start: 201510

REACTIONS (2)
  - Chills [Unknown]
  - Headache [Unknown]

NARRATIVE: CASE EVENT DATE: 2015
